FAERS Safety Report 21649324 (Version 1)
Quarter: 2022Q4

REPORT INFORMATION
  Report Type: Report from Study
  Country: CO (occurrence: CO)
  Receive Date: 20221128
  Receipt Date: 20221128
  Transmission Date: 20230113
  Serious: Yes (Other)
  Sender: FDA-Public Use
  Company Number: CO-ASTELLAS-2022US026799

PATIENT
  Age: 57 Year
  Sex: Male

DRUGS (1)
  1. TACROLIMUS [Suspect]
     Active Substance: TACROLIMUS
     Indication: Renal transplant
     Dosage: 8 MG, ONCE DAILY ((1 MG (3 CAPSULES) AND 5 MG (1 CAPSULE) A TOTAL DOSE OF 8 MG EVERY 24 HOURS)
     Route: 048
     Dates: start: 20110104

REACTIONS (4)
  - Secondary immunodeficiency [Recovering/Resolving]
  - Neoplasm skin [Recovering/Resolving]
  - Ocular neoplasm [Recovering/Resolving]
  - Tumour invasion [Recovering/Resolving]

NARRATIVE: CASE EVENT DATE: 20221102
